FAERS Safety Report 6051865-1 (Version None)
Quarter: 2009Q1

REPORT INFORMATION
  Report Type: 
  Country: None (occurrence: None)
  Receive Date: 20090121
  Receipt Date: 20090121
  Transmission Date: 20090719
  Serious: Yes (Other)
  Sender: FDA-Public Use
  Company Number: None

PATIENT
  Sex: Male
  Weight: 68.9467 kg

DRUGS (1)
  1. FLOMAX [Suspect]
     Indication: URINE FLOW DECREASED
     Dosage: ONCE DAILY PO
     Route: 048
     Dates: start: 20080828, end: 20081120

REACTIONS (2)
  - DIZZINESS [None]
  - PRESYNCOPE [None]
